FAERS Safety Report 8262817-5 (Version None)
Quarter: 2012Q2

REPORT INFORMATION
  Report Type: 
  Country: None (occurrence: None)
  Receive Date: 20120405
  Receipt Date: 20120328
  Transmission Date: 20120825
  Serious: Yes (Other)
  Sender: FDA-Public Use
  Company Number: US-JNJFOC-20120314370

PATIENT
  Sex: Female
  Weight: 72.58 kg

DRUGS (7)
  1. CARVEDILOL [Concomitant]
     Indication: HYPERTENSION
     Route: 048
  2. LEVOXYL [Concomitant]
     Indication: PRODUCT USED FOR UNKNOWN INDICATION
     Route: 048
  3. OMEPRAZOLE [Concomitant]
     Indication: DYSPEPSIA
     Route: 048
  4. LOSARTAN POTASSIUM [Concomitant]
     Indication: CARDIAC DISORDER
     Route: 048
     Dates: start: 20120201
  5. TRIAMTERENE AND HYDROCHLOROTHIAZIDE [Concomitant]
     Indication: DIURETIC THERAPY
     Route: 048
  6. TIMOLOL MALEATE [Concomitant]
     Indication: GLAUCOMA
     Route: 047
  7. XARELTO [Suspect]
     Indication: ATRIAL FIBRILLATION
     Route: 048
     Dates: start: 20120201

REACTIONS (3)
  - PRURITUS [None]
  - URTICARIA [None]
  - PSORIASIS [None]
